FAERS Safety Report 5352176-X (Version None)
Quarter: 2007Q2

REPORT INFORMATION
  Report Type: 
  Country: None (occurrence: None)
  Receive Date: 20070606
  Receipt Date: 20070523
  Transmission Date: 20071010
  Serious: Yes (Other)
  Sender: FDA-Public Use
  Company Number: 012832

PATIENT
  Age: 66 Year
  Sex: Male

DRUGS (1)
  1. PRIALT [Suspect]
     Indication: PAIN
     Dosage: 0.15 UG, ONCE/HOUR, INTRATHECAL
     Route: 037

REACTIONS (4)
  - CATHETER RELATED COMPLICATION [None]
  - GAIT DISTURBANCE [None]
  - INTERVERTEBRAL DISC PROTRUSION [None]
  - MONOPARESIS [None]
